FAERS Safety Report 5746250-3 (Version None)
Quarter: 2008Q2

REPORT INFORMATION
  Report Type: 
  Country: None (occurrence: None)
  Receive Date: 20080522
  Receipt Date: 20080514
  Transmission Date: 20081010
  Serious: Yes (Other)
  Sender: FDA-Public Use
  Company Number: US-BAYER-200822866NA

PATIENT
  Age: 47 Year
  Sex: Female
  Weight: 66 kg

DRUGS (5)
  1. ULTRAVIST 370 [Suspect]
     Indication: COMPUTERISED TOMOGRAM KIDNEY
     Dosage: TOTAL DAILY DOSE: 80 ML  UNIT DOSE: 500 ML
     Route: 042
     Dates: start: 20080514, end: 20080514
  2. AVAPRO [Concomitant]
  3. LEXAPRO [Concomitant]
  4. ENABLEX [Concomitant]
  5. NEXIUM [Concomitant]

REACTIONS (8)
  - DYSPNOEA [None]
  - EYE PRURITUS [None]
  - PHARYNGEAL ERYTHEMA [None]
  - PRURITUS GENERALISED [None]
  - THROAT IRRITATION [None]
  - THROAT TIGHTNESS [None]
  - URTICARIA [None]
  - WHEEZING [None]
